FAERS Safety Report 6504754-X (Version None)
Quarter: 2009Q4

REPORT INFORMATION
  Report Type: 
  Country: None (occurrence: None)
  Receive Date: 20091214
  Receipt Date: 20091204
  Transmission Date: 20100525
  Serious: Yes (Hospitalization, Other)
  Sender: FDA-Public Use
  Company Number: WAES 0907USA00672

PATIENT
  Age: 65 Year
  Sex: Female
  Weight: 53.978 kg

DRUGS (50)
  1. CAP VORINOSTAT UNK [Suspect]
     Indication: MULTIPLE MYELOMA
     Dosage: 400 MG/DAILY/PO ; 300 MG/DAILY/PO
     Route: 048
     Dates: start: 20090521, end: 20090528
  2. CAP VORINOSTAT UNK [Suspect]
     Indication: MULTIPLE MYELOMA
     Dosage: 400 MG/DAILY/PO ; 300 MG/DAILY/PO
     Route: 048
     Dates: start: 20090604, end: 20090611
  3. CAP VORINOSTAT UNK [Suspect]
     Indication: MULTIPLE MYELOMA
     Dosage: 400 MG/DAILY/PO ; 300 MG/DAILY/PO
     Route: 048
     Dates: start: 20090624, end: 20090701
  4. CAP VORINOSTAT UNK [Suspect]
     Indication: MULTIPLE MYELOMA
     Dosage: 400 MG/DAILY/PO ; 300 MG/DAILY/PO
     Route: 048
     Dates: start: 20090720, end: 20090722
  5. CAP VORINOSTAT UNK [Suspect]
     Indication: MULTIPLE MYELOMA
     Dosage: 400 MG/DAILY/PO ; 300 MG/DAILY/PO
     Route: 048
     Dates: start: 20090727, end: 20090729
  6. CAP VORINOSTAT UNK [Suspect]
     Indication: MULTIPLE MYELOMA
     Dosage: 400 MG/DAILY/PO ; 300 MG/DAILY/PO
     Route: 048
     Dates: start: 20090803, end: 20090805
  7. CAP VORINOSTAT UNK [Suspect]
     Indication: MULTIPLE MYELOMA
     Dosage: 400 MG/DAILY/PO ; 300 MG/DAILY/PO
     Route: 048
     Dates: start: 20090817, end: 20090824
  8. CAP VORINOSTAT UNK [Suspect]
     Indication: MULTIPLE MYELOMA
     Dosage: 400 MG/DAILY/PO ; 300 MG/DAILY/PO
     Route: 048
     Dates: start: 20090824, end: 20090824
  9. CAP VORINOSTAT UNK [Suspect]
     Indication: MULTIPLE MYELOMA
     Dosage: 400 MG/DAILY/PO ; 300 MG/DAILY/PO
     Route: 048
     Dates: start: 20090831, end: 20090831
  10. CAP LENALIDOMIDE UNK [Suspect]
     Indication: MULTIPLE MYELOMA
     Dosage: SEE IMAGE
     Route: 048
     Dates: start: 20090521, end: 20090610
  11. CAP LENALIDOMIDE UNK [Suspect]
     Indication: MULTIPLE MYELOMA
     Dosage: SEE IMAGE
     Route: 048
     Dates: start: 20090624, end: 20090702
  12. CAP LENALIDOMIDE UNK [Suspect]
     Indication: MULTIPLE MYELOMA
     Dosage: SEE IMAGE
     Route: 048
     Dates: start: 20090720, end: 20090809
  13. CAP LENALIDOMIDE UNK [Suspect]
     Indication: MULTIPLE MYELOMA
     Dosage: SEE IMAGE
     Route: 048
     Dates: start: 20090817, end: 20090831
  14. DEXAMETHASONE [Suspect]
     Indication: MULTIPLE MYELOMA
     Dosage: 40 MG/DAILY/PO
     Route: 048
     Dates: start: 20090521, end: 20090522
  15. DEXAMETHASONE [Suspect]
     Indication: MULTIPLE MYELOMA
     Dosage: 40 MG/DAILY/PO
     Route: 048
     Dates: start: 20090528, end: 20090529
  16. DEXAMETHASONE [Suspect]
     Indication: MULTIPLE MYELOMA
     Dosage: 40 MG/DAILY/PO
     Route: 048
     Dates: start: 20090604, end: 20090605
  17. DEXAMETHASONE [Suspect]
     Indication: MULTIPLE MYELOMA
     Dosage: 40 MG/DAILY/PO
     Route: 048
     Dates: start: 20090624, end: 20090625
  18. DEXAMETHASONE [Suspect]
     Indication: MULTIPLE MYELOMA
     Dosage: 40 MG/DAILY/PO
     Route: 048
     Dates: start: 20090701, end: 20090702
  19. DEXAMETHASONE [Suspect]
     Indication: MULTIPLE MYELOMA
     Dosage: 40 MG/DAILY/PO
     Route: 048
     Dates: start: 20090720, end: 20090720
  20. DEXAMETHASONE [Suspect]
     Indication: MULTIPLE MYELOMA
     Dosage: 40 MG/DAILY/PO
     Route: 048
     Dates: start: 20090727, end: 20090727
  21. DEXAMETHASONE [Suspect]
     Indication: MULTIPLE MYELOMA
     Dosage: 40 MG/DAILY/PO
     Route: 048
     Dates: start: 20090803, end: 20090803
  22. DEXAMETHASONE [Suspect]
     Indication: MULTIPLE MYELOMA
     Dosage: 40 MG/DAILY/PO
     Route: 048
     Dates: start: 20090810, end: 20090810
  23. DEXAMETHASONE [Suspect]
     Indication: MULTIPLE MYELOMA
     Dosage: 40 MG/DAILY/PO
     Route: 048
     Dates: start: 20090817, end: 20090817
  24. DEXAMETHASONE [Suspect]
     Indication: MULTIPLE MYELOMA
     Dosage: 40 MG/DAILY/PO
     Route: 048
     Dates: start: 20090824, end: 20090824
  25. DEXAMETHASONE [Suspect]
     Indication: MULTIPLE MYELOMA
     Dosage: 40 MG/DAILY/PO
     Route: 048
     Dates: start: 20090907, end: 20090907
  26. ATIVAN [Concomitant]
  27. BENEFIBER [Concomitant]
  28. CULTURELLE [Concomitant]
  29. IMODIUM A-D [Concomitant]
  30. L-CARNITINE [Concomitant]
  31. NEUROTONIN [Concomitant]
  32. NSI ALPHA LIPOIC ACID [Concomitant]
  33. PRILOSEC [Concomitant]
  34. SEROQUEL [Concomitant]
  35. TIGAN [Concomitant]
  36. ZOCOR [Concomitant]
  37. ZOFRAN [Concomitant]
  38. ZOMETA [Concomitant]
  39. ACYCLOVIR [Concomitant]
  40. ASPIRIN [Concomitant]
  41. BLOOD CELLS, RED [Concomitant]
  42. FOLIC ACID [Concomitant]
  43. LEVOCARNITINE [Concomitant]
  44. LOPERAMIDE HYDROCHLORIDE [Concomitant]
  45. METOPROLOL TARTRATE [Concomitant]
  46. OMEPRAZOLE [Concomitant]
  47. THIOCTIC ACID [Concomitant]
  48. TRIMETHOBENZAMIDE HYDROCHLORIDE [Concomitant]
  49. VITAMIN B (UNSPECIFIED) [Concomitant]
  50. VITAMINS (UNSPECIFIED) [Concomitant]

REACTIONS (10)
  - BUNDLE BRANCH BLOCK RIGHT [None]
  - DEHYDRATION [None]
  - ELECTROCARDIOGRAM QT PROLONGED [None]
  - ELECTROCARDIOGRAM ST SEGMENT ABNORMAL [None]
  - EXTRASYSTOLES [None]
  - GASTROENTERITIS [None]
  - SINUS BRADYCARDIA [None]
  - SUPRAVENTRICULAR EXTRASYSTOLES [None]
  - TROPONIN I INCREASED [None]
  - VENTRICULAR EXTRASYSTOLES [None]
